FAERS Safety Report 19124079 (Version 1)
Quarter: 2021Q2

REPORT INFORMATION
  Report Type: Report from Study
  Country: US (occurrence: US)
  Receive Date: 20210412
  Receipt Date: 20210412
  Transmission Date: 20210717
  Serious: Yes (Death, Hospitalization, Other)
  Sender: FDA-Public Use
  Company Number: US-SHIRE-US202030675

PATIENT
  Sex: Female
  Weight: 60 kg

DRUGS (2)
  1. TEDUGLUTIDE [Suspect]
     Active Substance: TEDUGLUTIDE
     Indication: SHORT-BOWEL SYNDROME
     Dosage: 3 MILLIGRAM, QD,1X/DAY:QD
     Route: 058
     Dates: start: 20191223
  2. TEDUGLUTIDE [Suspect]
     Active Substance: TEDUGLUTIDE
     Dosage: 0.3 MILLILITER, UNDER THE SKIN
     Route: 065

REACTIONS (2)
  - Stoma complication [Unknown]
  - Death [Fatal]
